FAERS Safety Report 6029933-X (Version None)
Quarter: 2009Q1

REPORT INFORMATION
  Report Type: 
  Country: None (occurrence: None)
  Receive Date: 20090107
  Receipt Date: 20071224
  Transmission Date: 20090719
  Serious: Yes (Hospitalization, Other)
  Sender: FDA-Public Use
  Company Number: US-BRISTOL-MYERS SQUIBB COMPANY-13824040

PATIENT
  Age: 26 Year
  Sex: Male

DRUGS (1)
  1. TRAZODONE HCL [Suspect]

REACTIONS (3)
  - GASTROINTESTINAL DISORDER [None]
  - POLLAKIURIA [None]
  - PRIAPISM [None]
